FAERS Safety Report 17360764 (Version 4)
Quarter: 2022Q2

REPORT INFORMATION
  Report Type: Report from Study
  Country: DE (occurrence: DE)
  Receive Date: 20200203
  Receipt Date: 20220421
  Transmission Date: 20220721
  Serious: Yes (Hospitalization)
  Sender: FDA-Public Use
  Company Number: None

PATIENT
  Age: 76 Year
  Sex: Male

DRUGS (4)
  1. ELTROMBOPAG [Suspect]
     Active Substance: ELTROMBOPAG
     Indication: Acute myeloid leukaemia
     Dosage: CODE NOT BROKEN
     Route: 048
     Dates: start: 20191213, end: 20191226
  2. INVESTIGATIONAL PRODUCT [Suspect]
     Active Substance: INVESTIGATIONAL PRODUCT
     Indication: Acute myeloid leukaemia
     Dosage: CODE NOT BROKEN
     Route: 048
     Dates: start: 20191213, end: 20191226
  3. PLACEBO [Suspect]
     Active Substance: UNSPECIFIED INGREDIENT
     Indication: Acute myeloid leukaemia
     Dosage: CODE NOT BROKEN
     Route: 048
     Dates: start: 20191213, end: 20191226
  4. DECITABINE [Concomitant]
     Active Substance: DECITABINE
     Indication: Product used for unknown indication
     Dosage: 20 MG/M2
     Route: 065
     Dates: start: 20191202, end: 20200101

REACTIONS (3)
  - Bronchitis [Recovered/Resolved]
  - Pneumonia [Not Recovered/Not Resolved]
  - Escherichia bacteraemia [Recovered/Resolved]

NARRATIVE: CASE EVENT DATE: 20200101
